FAERS Safety Report 10448967 (Version 2)
Quarter: 2014Q3

REPORT INFORMATION
  Report Type: Spontaneous
  Country: US (occurrence: US)
  Receive Date: 20140912
  Receipt Date: 20140922
  Transmission Date: 20150326
  Serious: Yes (Other)
  Sender: FDA-Public Use
  Company Number: US-AMGEN-USASP2014069272

PATIENT
  Age: 70 Year
  Sex: Female

DRUGS (1)
  1. PROLIA [Suspect]
     Active Substance: DENOSUMAB
     Indication: OSTEOPOROSIS POSTMENOPAUSAL
     Dosage: UNK
     Route: 065
     Dates: start: 20140715

REACTIONS (9)
  - Malaise [Recovering/Resolving]
  - Decreased appetite [Unknown]
  - Eructation [Unknown]
  - Irritable bowel syndrome [Unknown]
  - Fatigue [Unknown]
  - Hypersomnia [Unknown]
  - Increased appetite [Unknown]
  - Pain [Unknown]
  - Abdominal distension [Unknown]

NARRATIVE: CASE EVENT DATE: 201407
